FAERS Safety Report 9708280 (Version 1)
Quarter: 2013Q4

REPORT INFORMATION
  Report Type: Spontaneous
  Country: NO (occurrence: NO)
  Receive Date: 20131125
  Receipt Date: 20131125
  Transmission Date: 20140711
  Serious: Yes (Hospitalization)
  Sender: FDA-Public Use
  Company Number: NO-TEVA-444508ISR

PATIENT
  Sex: Male

DRUGS (7)
  1. CIPROFLOXACIN [Suspect]
     Indication: INFECTION
     Dosage: 10 DAY TREATMENT
     Route: 048
  2. NEXIUM [Concomitant]
     Route: 048
  3. MICARDISPLUS [Concomitant]
     Dosage: 80/12,5 MG (TELMISARTAN/HYDROCHLORTHIAZIDE)
     Route: 048
  4. BISOPROLOL [Concomitant]
     Route: 048
  5. VALLERGAN [Concomitant]
     Dosage: 3-5 TABLETS EVERY EVENING
     Route: 048
  6. FLAGYL [Concomitant]
     Dosage: USED AT THE SAME TIME AS THE PATIEN RECEIVED CIPROFLOXACINE
  7. FENEMAL [Concomitant]
     Route: 048

REACTIONS (6)
  - Rash generalised [Unknown]
  - Dermatitis exfoliative [Unknown]
  - Pruritus generalised [Unknown]
  - Skin exfoliation [Unknown]
  - Oedema peripheral [Unknown]
  - Pain in extremity [Unknown]
